FAERS Safety Report 7606393-6 (Version None)
Quarter: 2011Q3

REPORT INFORMATION
  Report Type: 
  Country: None (occurrence: None)
  Receive Date: 20110713
  Receipt Date: 20110707
  Transmission Date: 20111222
  Serious: Yes (Other)
  Sender: FDA-Public Use
  Company Number: US-PFIZER INC-2011082224

PATIENT
  Sex: Male

DRUGS (7)
  1. AMLODIPINE BESILATE [Concomitant]
     Indication: HYPERTENSION
     Dosage: UNK
     Dates: start: 20060101
  2. SIMVASTATIN [Concomitant]
     Indication: HYPERLIPIDAEMIA
     Dosage: UNK
     Dates: start: 20060101
  3. ZOLOFT [Concomitant]
     Indication: DEPRESSION
     Dosage: UNK
     Dates: start: 20070101, end: 20090101
  4. PREVACID [Concomitant]
     Indication: PAIN
     Dosage: UNK
     Dates: start: 20070101, end: 20100101
  5. CHANTIX [Suspect]
     Indication: SMOKING CESSATION THERAPY
     Dosage: STARTING PACK AND CONTINUING PACK
     Dates: start: 20080305, end: 20080401
  6. PLAVIX [Concomitant]
     Indication: CEREBROVASCULAR ACCIDENT
     Dosage: UNK
     Dates: start: 20060101
  7. CELEBREX [Concomitant]
     Indication: PAIN
     Dosage: UNK
     Dates: start: 20070101, end: 20090101

REACTIONS (2)
  - SUICIDAL IDEATION [None]
  - MAJOR DEPRESSION [None]
